FAERS Safety Report 8954565 (Version 1)
Quarter: 2012Q4

REPORT INFORMATION
  Report Type: 
  Country: GB (occurrence: GB)
  Receive Date: 20121207
  Receipt Date: 20121207
  Transmission Date: 20130627
  Serious: Yes (Hospitalization, Other)
  Sender: FDA-Public Use
  Company Number: GB-ELI_LILLY_AND_COMPANY-GB201211008134

PATIENT
  Sex: Male

DRUGS (1)
  1. HUMATROPE [Suspect]
     Dosage: UNK UNK, unknown
     Route: 058

REACTIONS (3)
  - Knee arthroplasty [Unknown]
  - Localised infection [Unknown]
  - Incorrect dose administered [Unknown]
